FAERS Safety Report 6892338-3 (Version None)
Quarter: 2010Q3

REPORT INFORMATION
  Report Type: 
  Country: None (occurrence: None)
  Receive Date: 20100731
  Receipt Date: 20080404
  Transmission Date: 20110219
  Serious: No
  Sender: FDA-Public Use
  Company Number: US-PFIZER INC-2008030644

PATIENT
  Sex: Female
  Weight: 70.454 kg

DRUGS (2)
  1. DEPO-MEDROL [Suspect]
     Dates: start: 20080301
  2. LIPITOR [Concomitant]

REACTIONS (1)
  - PRODUCT QUALITY ISSUE [None]
